FAERS Safety Report 6142539-7 (Version None)
Quarter: 2009Q2

REPORT INFORMATION
  Report Type: 
  Country: None (occurrence: None)
  Receive Date: 20090403
  Receipt Date: 20090324
  Transmission Date: 20091009
  Serious: Yes (Other)
  Sender: FDA-Public Use
  Company Number: US-JNJFOC-20090306494

PATIENT
  Sex: Female
  Weight: 90.72 kg

DRUGS (5)
  1. REMICADE [Suspect]
     Route: 042
  2. REMICADE [Suspect]
     Indication: CROHN'S DISEASE
     Route: 042
  3. LORTAB [Concomitant]
     Indication: PAIN
  4. LOMOTIL [Concomitant]
  5. CANASA [Concomitant]

REACTIONS (1)
  - WEIGHT INCREASED [None]
